FAERS Safety Report 9711104 (Version 1)
Quarter: 2013Q4

REPORT INFORMATION
  Report Type: Spontaneous
  Country: US (occurrence: US)
  Receive Date: 20131126
  Receipt Date: 20131126
  Transmission Date: 20140711
  Serious: No
  Sender: FDA-Public Use
  Company Number: US-BRISTOL-MYERS SQUIBB COMPANY-19142512

PATIENT
  Age: 72 Year
  Sex: Female
  Weight: 111.56 kg

DRUGS (2)
  1. BYETTA [Suspect]
     Indication: TYPE 2 DIABETES MELLITUS
  2. LANTUS [Concomitant]
     Dosage: INITIAL DOSE 40 UNITS

REACTIONS (2)
  - Drug ineffective [Unknown]
  - Weight decreased [Unknown]
